FAERS Safety Report 21968756 (Version 1)
Quarter: 2023Q1

REPORT INFORMATION
  Report Type: Spontaneous
  Country: US (occurrence: US)
  Receive Date: 20230208
  Receipt Date: 20230208
  Transmission Date: 20230417
  Serious: Yes (Other)
  Sender: FDA-Public Use
  Company Number: US-ALLERGAN-2127468US

PATIENT
  Sex: Male

DRUGS (1)
  1. REFRESH CELLUVISC [Suspect]
     Active Substance: CARBOXYMETHYLCELLULOSE SODIUM
     Indication: Dry eye
     Dosage: UNK

REACTIONS (4)
  - Eyelid operation [Unknown]
  - Poor quality product administered [Unknown]
  - Eyelid ptosis [Unknown]
  - Dry eye [Unknown]
